FAERS Safety Report 25461367 (Version 1)
Quarter: 2025Q2

REPORT INFORMATION
  Report Type: Spontaneous
  Country: US (occurrence: None)
  Receive Date: 20250618
  Receipt Date: 20250618
  Transmission Date: 20250716
  Serious: Yes (Other)
  Sender: FDA-CTU
  Company Number: None

PATIENT
  Age: 47 Year
  Sex: Female
  Weight: 123.75 kg

DRUGS (1)
  1. PEG-3350 AND ELECTROLYTES [Suspect]
     Active Substance: POLYETHYLENE GLYCOL 3350\POTASSIUM CHLORIDE\SODIUM BICARBONATE\SODIUM CHLORIDE\SODIUM SULFATE
     Indication: Colonoscopy
     Route: 048
     Dates: start: 20250612, end: 20250612

REACTIONS (9)
  - Dizziness [None]
  - Presyncope [None]
  - Oropharyngeal pain [None]
  - Paraesthesia [None]
  - Hypoaesthesia [None]
  - White blood cell count increased [None]
  - Arthralgia [None]
  - Blood potassium decreased [None]
  - Pneumonia [None]

NARRATIVE: CASE EVENT DATE: 20250612
